FAERS Safety Report 20659980 (Version 1)
Quarter: 2022Q1

REPORT INFORMATION
  Report Type: Spontaneous
  Country: US (occurrence: US)
  Receive Date: 20220331
  Receipt Date: 20220331
  Transmission Date: 20220424
  Serious: No
  Sender: FDA-Public Use
  Company Number: US-PFIZER INC-2021749765

PATIENT
  Age: 48 Year
  Sex: Female

DRUGS (4)
  1. INLYTA [Suspect]
     Active Substance: AXITINIB
     Dosage: 5 MG
     Dates: start: 20210610
  2. INLYTA [Suspect]
     Active Substance: AXITINIB
     Dosage: 5 MG
     Dates: start: 20210615, end: 20210806
  3. INLYTA [Suspect]
     Active Substance: AXITINIB
     Dosage: 1 MG, DAILY
     Dates: start: 20210817
  4. INLYTA [Suspect]
     Active Substance: AXITINIB
     Dosage: 1 MG
     Dates: start: 20210610

REACTIONS (13)
  - Headache [Recovered/Resolved]
  - Dry skin [Recovered/Resolved]
  - Neck pain [Recovered/Resolved]
  - Dysphonia [Recovered/Resolved]
  - Blood pressure increased [Unknown]
  - Blister [Recovered/Resolved]
  - Stomatitis [Recovered/Resolved]
  - Oral pain [Recovered/Resolved]
  - Arthralgia [Recovered/Resolved]
  - Acne [Recovered/Resolved]
  - Dry mouth [Recovered/Resolved]
  - Neoplasm progression [Unknown]
  - Product dose omission in error [Unknown]
